FAERS Safety Report 23197415 (Version 1)
Quarter: 2023Q4

REPORT INFORMATION
  Report Type: Spontaneous
  Country: US (occurrence: None)
  Receive Date: 20231117
  Receipt Date: 20231117
  Transmission Date: 20240110
  Serious: Yes (Hospitalization)
  Sender: FDA-Public Use
  Company Number: None

PATIENT
  Age: 65 Year
  Sex: Male
  Weight: 85.05 kg

DRUGS (8)
  1. ABECMA [Suspect]
     Active Substance: IDECABTAGENE VICLEUCEL
     Indication: Plasma cell myeloma
     Dosage: FREQUENCY : ONCE;?
     Route: 041
     Dates: start: 20230123, end: 20230123
  2. DULOXETINE [Concomitant]
     Active Substance: DULOXETINE
  3. FLUCONAZOLE [Concomitant]
     Active Substance: FLUCONAZOLE
  4. HUMALOG [Concomitant]
     Active Substance: INSULIN LISPRO
  5. LEVETIRACETAM [Concomitant]
     Active Substance: LEVETIRACETAM
  6. LEVOTHYROXINE [Concomitant]
     Active Substance: LEVOTHYROXINE
  7. PANTOPRAZOLE [Concomitant]
     Active Substance: PANTOPRAZOLE
  8. PREGABALIN [Concomitant]
     Active Substance: PREGABALIN

REACTIONS (7)
  - Toxicity to various agents [None]
  - Mental status changes [None]
  - Tachycardia [None]
  - Cytokine release syndrome [None]
  - Immune effector cell-associated neurotoxicity syndrome [None]
  - Hypogammaglobulinaemia [None]
  - Viral upper respiratory tract infection [None]

NARRATIVE: CASE EVENT DATE: 20230209
